FAERS Safety Report 6504423-6 (Version None)
Quarter: 2009Q4

REPORT INFORMATION
  Report Type: 
  Country: None (occurrence: None)
  Receive Date: 20091214
  Receipt Date: 20091207
  Transmission Date: 20100525
  Serious: Yes (Hospitalization, Other)
  Sender: FDA-Public Use
  Company Number: WAES0911USA03410

PATIENT
  Age: 68 Year
  Sex: Male
  Weight: 63.9572 kg

DRUGS (10)
  1. CAP VORINOSTAT 100 MG [Suspect]
     Indication: MULTIPLE MYELOMA
     Dosage: 400 MG/DAILY/PO 400 MG/DAILY/PO 400 MG/DAILY/PO
     Route: 048
     Dates: start: 20091020, end: 20091023
  2. CAP VORINOSTAT 100 MG [Suspect]
     Indication: MULTIPLE MYELOMA
     Dosage: 400 MG/DAILY/PO 400 MG/DAILY/PO 400 MG/DAILY/PO
     Route: 048
     Dates: start: 20091113, end: 20091116
  3. CAP VORINOSTAT 100 MG [Suspect]
     Indication: MULTIPLE MYELOMA
     Dosage: 400 MG/DAILY/PO 400 MG/DAILY/PO 400 MG/DAILY/PO
     Route: 048
     Dates: start: 20091119, end: 20091120
  4. INFUSION (FORM) BORTEZOMIB UNK [Suspect]
     Indication: MULTIPLE MYELOMA
     Dosage: 2.2 MG/M [2] /IV 1.3 MG/M[2] /IV  2.2 MG/M[2] /IV
     Route: 042
     Dates: start: 20091020, end: 20091023
  5. INFUSION (FORM) BORTEZOMIB UNK [Suspect]
     Indication: MULTIPLE MYELOMA
     Dosage: 2.2 MG/M [2] /IV 1.3 MG/M[2] /IV  2.2 MG/M[2] /IV
     Route: 042
     Dates: start: 20091113, end: 20091116
  6. INFUSION (FORM) BORTEZOMIB UNK [Suspect]
     Indication: MULTIPLE MYELOMA
     Dosage: 2.2 MG/M [2] /IV 1.3 MG/M[2] /IV  2.2 MG/M[2] /IV
     Route: 042
     Dates: start: 20091120, end: 20091120
  7. AMOXICILLIN AND CLAVULANATE POTASSIUM [Concomitant]
  8. ACYCLOVIR [Concomitant]
  9. BISOPROLOL [Concomitant]
  10. LANSOPRAZOLE [Concomitant]

REACTIONS (22)
  - ANAEMIA [None]
  - ASPARTATE AMINOTRANSFERASE INCREASED [None]
  - BLOOD LACTATE DEHYDROGENASE INCREASED [None]
  - BLOOD PRESSURE DIASTOLIC INCREASED [None]
  - DIARRHOEA [None]
  - DISEASE PROGRESSION [None]
  - DYSPNOEA [None]
  - EMPHYSEMA [None]
  - FEBRILE NEUTROPENIA [None]
  - HEADACHE [None]
  - HYPOTENSION [None]
  - INFECTION [None]
  - INTERNATIONAL NORMALISED RATIO INCREASED [None]
  - LOWER RESPIRATORY TRACT INFECTION [None]
  - PALPITATIONS [None]
  - PLATELET COUNT DECREASED [None]
  - PNEUMOCYSTIS JIROVECI PNEUMONIA [None]
  - PROTHROMBIN TIME PROLONGED [None]
  - RESPIRATORY RATE INCREASED [None]
  - SPUTUM CULTURE POSITIVE [None]
  - TACHYCARDIA [None]
  - WHITE BLOOD CELL COUNT DECREASED [None]
